FAERS Safety Report 7415507-2 (Version None)
Quarter: 2011Q2

REPORT INFORMATION
  Report Type: 
  Country: None (occurrence: None)
  Receive Date: 20110414
  Receipt Date: 20110404
  Transmission Date: 20111010
  Serious: Yes (Death, Other)
  Sender: FDA-Public Use
  Company Number: JP-MILLENNIUM PHARMACEUTICALS, INC.-2007-03482

PATIENT

DRUGS (18)
  1. DECADRON [Suspect]
     Dosage: 40 MG, UNK
     Route: 048
     Dates: start: 20070219, end: 20070302
  2. MAGNESIUM OXIDE [Concomitant]
     Dosage: 0.67 G, UNK
     Route: 048
     Dates: start: 20060703
  3. SOLDEM 1 [Concomitant]
     Dosage: 500 DF, QD
     Route: 042
     Dates: start: 20070412, end: 20070611
  4. SOLDEM 1 [Concomitant]
     Indication: DIZZINESS
     Dosage: 1000 ML, UNK
     Route: 048
     Dates: start: 20070212, end: 20070212
  5. VELCADE [Suspect]
     Indication: MULTIPLE MYELOMA
     Dosage: 2 MG, UNK
     Route: 042
     Dates: start: 20070129, end: 20080303
  6. MAGNESIUM OXIDE [Concomitant]
     Indication: PROPHYLAXIS
     Dosage: 2.00 G, UNK
     Route: 048
     Dates: start: 20060703
  7. DECADRON [Suspect]
     Dosage: 4 MG, UNK
     Dates: start: 20070312, end: 20070713
  8. BUFFERIN [Concomitant]
     Indication: PROPHYLAXIS
     Dosage: 81.00 MG, UNK
     Route: 048
     Dates: start: 20040101, end: 20070206
  9. DECADRON [Concomitant]
     Dosage: 8.0 MG, UNK
     Route: 048
     Dates: start: 20080107, end: 20080304
  10. ZANTAC [Concomitant]
     Indication: PROPHYLAXIS
     Dosage: 150.00 MG, UNK
     Route: 048
     Dates: start: 20070126
  11. ULCERLMIN [Concomitant]
     Indication: PROPHYLAXIS
     Dosage: 3.00 G, UNK
     Route: 048
     Dates: start: 20070210
  12. HYALURONATE SODIUM [Concomitant]
     Indication: DRY EYE
     Dosage: UNK
     Dates: start: 20070807
  13. BAKTAR [Concomitant]
     Indication: PROPHYLAXIS
     Dosage: 4 DF, UNK
     Route: 048
     Dates: end: 20070210
  14. DECADRON [Concomitant]
     Indication: MULTIPLE MYELOMA
     Dosage: 4.0 MG, UNK
     Route: 048
     Dates: start: 20070723, end: 20071127
  15. ZOVIRAX                            /00587301/ [Concomitant]
     Indication: PROPHYLAXIS
     Dosage: 200 MG, UNK
     Route: 048
     Dates: start: 20080128
  16. DECADRON [Suspect]
     Indication: MULTIPLE MYELOMA
     Dosage: 4.00 MG, UNK
     Route: 048
     Dates: start: 20070129, end: 20070209
  17. ZANTAC [Concomitant]
     Dosage: 300 MG, UNK
     Route: 048
     Dates: start: 20070514, end: 20070920
  18. BAKTAR [Concomitant]
     Dosage: 2.00 DF, UNK
     Route: 048
     Dates: end: 20070211

REACTIONS (4)
  - DEATH [None]
  - HERPES ZOSTER [None]
  - NERVE INJURY [None]
  - INAPPROPRIATE ANTIDIURETIC HORMONE SECRETION [None]
